FAERS Safety Report 5729794-X (Version None)
Quarter: 2008Q2

REPORT INFORMATION
  Report Type: 
  Country: None (occurrence: None)
  Receive Date: 20080501
  Receipt Date: 20080417
  Transmission Date: 20081010
  Serious: Yes (Death, Other)
  Sender: FDA-Public Use
  Company Number: 2008000573

PATIENT
  Age: 73 Year
  Sex: Male

DRUGS (1)
  1. TARCEVA [Suspect]
     Indication: LUNG NEOPLASM MALIGNANT
     Dosage: (150 MG, QD), ORAL
     Route: 048
     Dates: start: 20080215, end: 20080224

REACTIONS (3)
  - DISEASE PROGRESSION [None]
  - PLEURAL EFFUSION [None]
  - RESPIRATORY TRACT INFECTION [None]
